FAERS Safety Report 9235738 (Version 4)
Quarter: 2013Q3

REPORT INFORMATION
  Report Type: Report from Study
  Country: FR (occurrence: FR)
  Receive Date: 20130417
  Receipt Date: 20130919
  Transmission Date: 20140515
  Serious: Yes (Death, Hospitalization)
  Sender: FDA-Public Use
  Company Number: FR-SANOFI-AVENTIS-2013SA037476

PATIENT
  Age: 82 Year
  Sex: Male

DRUGS (20)
  1. AFLIBERCEPT [Suspect]
     Indication: COLORECTAL CANCER METASTATIC
     Route: 041
     Dates: start: 20130118, end: 20130118
  2. AFLIBERCEPT [Suspect]
     Indication: COLORECTAL CANCER METASTATIC
     Route: 041
     Dates: start: 20130205, end: 20130205
  3. LEUCOVORIN [Suspect]
     Indication: COLORECTAL CANCER METASTATIC
     Route: 041
     Dates: start: 20130118, end: 20130118
  4. LEUCOVORIN [Suspect]
     Indication: COLORECTAL CANCER METASTATIC
     Route: 041
     Dates: start: 20130205, end: 20130205
  5. IRINOTECAN [Suspect]
     Indication: COLORECTAL CANCER METASTATIC
     Route: 041
     Dates: start: 20130118, end: 20130118
  6. IRINOTECAN [Suspect]
     Indication: COLORECTAL CANCER METASTATIC
     Route: 041
     Dates: start: 20130205, end: 20130205
  7. 5-FU [Suspect]
     Indication: COLORECTAL CANCER METASTATIC
     Route: 040
     Dates: start: 20130118, end: 20130118
  8. 5-FU [Suspect]
     Indication: COLORECTAL CANCER METASTATIC
     Route: 041
     Dates: start: 20130118, end: 20130118
  9. 5-FU [Suspect]
     Indication: COLORECTAL CANCER METASTATIC
     Route: 041
     Dates: start: 20130205, end: 20130205
  10. EMEND [Concomitant]
     Indication: PROPHYLAXIS
     Dates: start: 20130118
  11. ZOPHREN [Concomitant]
     Indication: PROPHYLAXIS
     Dates: start: 20130118
  12. OMEPRAZOLE [Concomitant]
     Indication: PROPHYLAXIS
     Dates: start: 20130118
  13. POTASSIUM CHLORIDE [Concomitant]
     Dates: start: 20130118
  14. CALCIUM CHANNEL BLOCKERS [Concomitant]
     Dates: start: 2012, end: 20130219
  15. TRIATEC [Concomitant]
     Dates: start: 2012, end: 20130219
  16. JOSIR [Concomitant]
     Dates: start: 2013
  17. HEPARIN GROUP [Concomitant]
     Indication: PROPHYLAXIS
     Dates: start: 2013
  18. INIPOMP [Concomitant]
     Indication: PROPHYLAXIS
     Dates: start: 201301
  19. IMODIUM [Concomitant]
     Dates: start: 20130121, end: 20130125
  20. DOMPERIDONE [Concomitant]
     Dates: start: 20130125, end: 20130130

REACTIONS (1)
  - Disease progression [Fatal]
